FAERS Safety Report 23103151 (Version 1)
Quarter: 2023Q4

REPORT INFORMATION
  Report Type: Spontaneous
  Country: US (occurrence: None)
  Receive Date: 20231021
  Receipt Date: 20231021
  Transmission Date: 20240110
  Serious: Yes (Hospitalization)
  Sender: FDA-Public Use
  Company Number: None

PATIENT
  Age: 42 Year
  Sex: Female

DRUGS (1)
  1. BENCOCAINE TOPICAL ANESTHETIC [Suspect]
     Active Substance: BENZOCAINE
     Dosage: FREQUENCY : ONCE;?
     Route: 048
     Dates: start: 20230317, end: 20230317

REACTIONS (5)
  - Rash [None]
  - Drug hypersensitivity [None]
  - Oral mucosal blistering [None]
  - Tongue blistering [None]
  - Blister [None]

NARRATIVE: CASE EVENT DATE: 20230318
